FAERS Safety Report 20673566 (Version 2)
Quarter: 2022Q2

REPORT INFORMATION
  Report Type: Spontaneous
  Country: CA (occurrence: CA)
  Receive Date: 20220405
  Receipt Date: 20220427
  Transmission Date: 20220721
  Serious: Yes (Other)
  Sender: FDA-Public Use
  Company Number: CA-CELLTRION INC.-2022CA004155

PATIENT

DRUGS (6)
  1. INFLECTRA [Suspect]
     Active Substance: INFLIXIMAB-DYYB
     Indication: Colitis ulcerative
     Dosage: 400 MG Q 0,2,6 THEN EVERY 8 WEEKS
     Route: 042
     Dates: start: 20211215, end: 20220127
  2. INFLECTRA [Suspect]
     Active Substance: INFLIXIMAB-DYYB
     Dosage: 400 MG Q 0,2,6 THEN EVERY 8 WEEKS
     Route: 042
     Dates: start: 20220127
  3. INFLECTRA [Suspect]
     Active Substance: INFLIXIMAB-DYYB
     Dosage: 10 MG/KG, ONE TIME DOSE
     Route: 042
     Dates: start: 20220324, end: 20220324
  4. INFLECTRA [Suspect]
     Active Substance: INFLIXIMAB-DYYB
     Dosage: 10 MG/KG, ONE TIME DOSE
     Route: 042
     Dates: start: 20220324, end: 20220324
  5. INFLECTRA [Suspect]
     Active Substance: INFLIXIMAB-DYYB
     Dosage: 10 MG/KG, ONE TIME DOSE
     Route: 042
     Dates: start: 20220324, end: 20220324
  6. MESALAMINE [Concomitant]
     Active Substance: MESALAMINE
     Dosage: UNK

REACTIONS (8)
  - Vomiting [Unknown]
  - Drug ineffective [Unknown]
  - Condition aggravated [Unknown]
  - Abdominal distension [Unknown]
  - Erythema [Unknown]
  - Dyspnoea [Unknown]
  - Infusion related reaction [Unknown]
  - Hypersensitivity [Unknown]

NARRATIVE: CASE EVENT DATE: 20220324
